FAERS Safety Report 22769008 (Version 3)
Quarter: 2024Q4

REPORT INFORMATION
  Report Type: Spontaneous
  Country: US (occurrence: US)
  Receive Date: 20230731
  Receipt Date: 20241024
  Transmission Date: 20250115
  Serious: Yes (Other)
  Sender: CSL BEHRING
  Company Number: US-BEH-2023161629

PATIENT
  Age: 51 Year
  Sex: Male

DRUGS (5)
  1. IDELVION [Suspect]
     Active Substance: COAGULATION FACTOR IX RECOMBINANT HUMAN
     Indication: Factor IX deficiency
     Dosage: 7000 INTERNATIONAL UNIT, QW (EVERY 7 DAYS)
     Route: 042
     Dates: start: 202205
  2. IDELVION [Suspect]
     Active Substance: COAGULATION FACTOR IX RECOMBINANT HUMAN
     Indication: Factor IX deficiency
     Dosage: 7000 INTERNATIONAL UNIT, QW (EVERY 7 DAYS)
     Route: 042
     Dates: start: 202205
  3. IDELVION [Suspect]
     Active Substance: COAGULATION FACTOR IX RECOMBINANT HUMAN
     Dosage: 6850 INTERNATIONAL UNIT, QW (EVERY 7 DAYS)
     Route: 042
     Dates: start: 202205
  4. IDELVION [Suspect]
     Active Substance: COAGULATION FACTOR IX RECOMBINANT HUMAN
     Dosage: 6850 INTERNATIONAL UNIT, QW (EVERY 7 DAYS)
     Route: 042
     Dates: start: 202205
  5. SALINE [Concomitant]
     Active Substance: SODIUM CHLORIDE

REACTIONS (6)
  - Haemarthrosis [Unknown]
  - Haemarthrosis [Unknown]
  - Haemarthrosis [Unknown]
  - Haemarthrosis [Unknown]
  - Haemarthrosis [Recovered/Resolved]
  - Sick leave [Unknown]

NARRATIVE: CASE EVENT DATE: 20231215
